FAERS Safety Report 11447960 (Version 1)
Quarter: 2015Q3

REPORT INFORMATION
  Report Type: Spontaneous
  Country: US (occurrence: US)
  Receive Date: 20150831
  Receipt Date: 20150831
  Transmission Date: 20151125
  Serious: Yes (Hospitalization)
  Sender: FDA-Public Use
  Company Number: US-ELI_LILLY_AND_COMPANY-US200904001335

PATIENT
  Age: 48 Year
  Sex: Female

DRUGS (2)
  1. CYMBALTA [Suspect]
     Active Substance: DULOXETINE HYDROCHLORIDE
     Indication: MAJOR DEPRESSION
     Dosage: 120 MG, UNK
     Dates: start: 2007, end: 2009
  2. LITHIUM. [Concomitant]
     Active Substance: LITHIUM
     Dosage: 900 MG, UNK

REACTIONS (3)
  - Serotonin syndrome [Recovered/Resolved]
  - Hypertension [Unknown]
  - Cluster headache [Recovered/Resolved]

NARRATIVE: CASE EVENT DATE: 200903
